FAERS Safety Report 7978663-3 (Version None)
Quarter: 2011Q4

REPORT INFORMATION
  Report Type: 
  Country: None (occurrence: None)
  Receive Date: 20111202
  Receipt Date: 20111121
  Transmission Date: 20120403
  Serious: Yes (Other)
  Sender: FDA-Public Use
  Company Number: 2011SP054526

PATIENT
  Age: 40 Year
  Sex: Female
  Weight: 87.9978 kg

DRUGS (10)
  1. RIBAVIRIN [Suspect]
     Dosage: 200 MG
  2. FISH OIL [Concomitant]
  3. LAMOTRIGINE [Concomitant]
  4. CLONAZEPAM [Concomitant]
  5. VICTRELIS [Suspect]
     Dosage: 200 MG;Q8H;PO
     Route: 048
  6. NEXIUM [Concomitant]
  7. HYDROCODONE BITARTRATE AND ACETAMINOPHEN [Concomitant]
  8. PEGASYS [Suspect]
  9. ZOFRAN [Concomitant]
  10. MELATONIN [Concomitant]

REACTIONS (1)
  - BRONCHITIS [None]
